FAERS Safety Report 14859866 (Version 1)
Quarter: 2018Q2

REPORT INFORMATION
  Report Type: Spontaneous
  Country: US (occurrence: US)
  Receive Date: 20180423
  Receipt Date: 20180423
  Transmission Date: 20180711
  Serious: No
  Sender: FDA-Public Use
  Company Number: None

PATIENT
  Age: 54 Year
  Sex: Male

DRUGS (1)
  1. SPRYCEL [Suspect]
     Active Substance: DASATINIB

REACTIONS (5)
  - Cardiomegaly [None]
  - Headache [None]
  - Dyspnoea [None]
  - Pneumonia [None]
  - Cough [None]

NARRATIVE: CASE EVENT DATE: 20180423
